FAERS Safety Report 7326524-5 (Version None)
Quarter: 2011Q1

REPORT INFORMATION
  Report Type: 
  Country: None (occurrence: None)
  Receive Date: 20110302
  Receipt Date: 20100916
  Transmission Date: 20110831
  Serious: Yes (Hospitalization)
  Sender: FDA-Public Use
  Company Number: US-BAYER-201011739NA

PATIENT
  Sex: Female
  Weight: 65 kg

DRUGS (6)
  1. YAZ [Suspect]
     Indication: CONTRACEPTION
     Route: 048
     Dates: start: 20090524, end: 20091030
  2. MIDRIN [Concomitant]
     Indication: MIGRAINE
     Dates: start: 20090805, end: 20100102
  3. YASMIN [Suspect]
     Dosage: UNK
     Dates: start: 20030512, end: 20061207
  4. PRISTIQ [Concomitant]
     Indication: DEPRESSION
     Dates: start: 20090801, end: 20100102
  5. RELPAX [Concomitant]
     Dates: start: 20081101
  6. ADVIL LIQUI-GELS [Concomitant]
     Dates: start: 19920101

REACTIONS (4)
  - ABDOMINAL PAIN UPPER [None]
  - CHOLECYSTITIS CHRONIC [None]
  - NAUSEA [None]
  - GALLBLADDER CHOLESTEROLOSIS [None]
